FAERS Safety Report 17111992 (Version 1)
Quarter: 2019Q4

REPORT INFORMATION
  Report Type: Spontaneous
  Country: US (occurrence: US)
  Receive Date: 20191203
  Receipt Date: 20191203
  Transmission Date: 20200122
  Serious: Yes (Hospitalization)
  Sender: FDA-Public Use
  Company Number: None

PATIENT
  Age: 94 Year
  Sex: Male
  Weight: 59.4 kg

DRUGS (7)
  1. CIPROFLOXACIN. [Concomitant]
     Active Substance: CIPROFLOXACIN
  2. ELIQUIS [Concomitant]
     Active Substance: APIXABAN
  3. ERLEADA [Suspect]
     Active Substance: APALUTAMIDE
     Indication: PROSTATE CANCER
     Route: 048
     Dates: start: 20191029
  4. MIRALAX [Concomitant]
     Active Substance: POLYETHYLENE GLYCOL 3350
  5. WARFARIN [Concomitant]
     Active Substance: WARFARIN
  6. CEFPODOXIME [Concomitant]
     Active Substance: CEFPODOXIME
  7. MARINOL [Concomitant]
     Active Substance: DRONABINOL

REACTIONS (1)
  - Hospitalisation [None]

NARRATIVE: CASE EVENT DATE: 20191203
